FAERS Safety Report 6743589-X (Version None)
Quarter: 2010Q2

REPORT INFORMATION
  Report Type: 
  Country: None (occurrence: None)
  Receive Date: 20100526
  Receipt Date: 20100526
  Transmission Date: 20101027
  Serious: No
  Sender: FDA-Public Use
  Company Number: None

PATIENT
  Age: 45 Year
  Sex: Female
  Weight: 68.4932 kg

DRUGS (1)
  1. ALENDRONATE SODIUM [Suspect]
     Dosage: 70 MG 1 Q WEEK ORAL
     Route: 048
     Dates: start: 20081215

REACTIONS (1)
  - DYSGEUSIA [None]
